FAERS Safety Report 21999757 (Version 1)
Quarter: 2023Q1

REPORT INFORMATION
  Report Type: Spontaneous
  Country: AU (occurrence: AU)
  Receive Date: 20230216
  Receipt Date: 20230216
  Transmission Date: 20230417
  Serious: Yes (Other)
  Sender: FDA-Public Use
  Company Number: AU-Waylis Therapeutics LLC-ATNAHS20230200444

PATIENT
  Age: 43 Year
  Sex: Male

DRUGS (6)
  1. DIAZEPAM [Suspect]
     Active Substance: DIAZEPAM
     Indication: Product used for unknown indication
  2. BREXPIPRAZOLE [Suspect]
     Active Substance: BREXPIPRAZOLE
     Indication: Product used for unknown indication
     Dosage: 1 DOSE PER 2D
  3. CLOMIPRAMINE HYDROCHLORIDE [Suspect]
     Active Substance: CLOMIPRAMINE HYDROCHLORIDE
     Indication: Product used for unknown indication
  4. CLOZAPINE [Suspect]
     Active Substance: CLOZAPINE
     Indication: Product used for unknown indication
  5. GEMFIBROZIL [Suspect]
     Active Substance: GEMFIBROZIL
     Indication: Product used for unknown indication
  6. PALIPERIDONE [Suspect]
     Active Substance: PALIPERIDONE
     Indication: Product used for unknown indication

REACTIONS (11)
  - Coronary ostial stenosis [Unknown]
  - Leukopenia [Unknown]
  - Myocarditis [Unknown]
  - Neutropenia [Unknown]
  - Ventricular hypokinesia [Unknown]
  - Pyrexia [Unknown]
  - Rhinitis [Unknown]
  - Systolic dysfunction [Unknown]
  - Troponin increased [Unknown]
  - Upper respiratory tract infection [Unknown]
  - Viral infection [Unknown]
